FAERS Safety Report 6588704-6 (Version None)
Quarter: 2010Q1

REPORT INFORMATION
  Report Type: 
  Country: None (occurrence: None)
  Receive Date: 20100212
  Receipt Date: 20100129
  Transmission Date: 20100710
  Serious: Yes (Other)
  Sender: FDA-Public Use
  Company Number: 10FR001256

PATIENT
  Age: 47 Year
  Sex: Male

DRUGS (5)
  1. PAROXETINE HCL [Suspect]
     Indication: DEPRESSION
  2. PHENOBARBITAL TAB [Concomitant]
  3. ACAMPROSATE (ACAMPROSATE) [Concomitant]
  4. PIROXICAM [Concomitant]
  5. TETRAZEPAM (TETRAZEPAM) [Concomitant]

REACTIONS (1)
  - PHOTODERMATOSIS [None]
